FAERS Safety Report 23236363 (Version 2)
Quarter: 2023Q4

REPORT INFORMATION
  Report Type: Report from Study
  Country: US (occurrence: US)
  Receive Date: 20231128
  Receipt Date: 20231213
  Transmission Date: 20240110
  Serious: No
  Sender: FDA-Public Use
  Company Number: US-002147023-NVSC2023US248351

PATIENT
  Sex: Female

DRUGS (1)
  1. KISQALI [Suspect]
     Active Substance: RIBOCICLIB
     Indication: Product used for unknown indication
     Dosage: UNK
     Route: 048

REACTIONS (8)
  - Feeling hot [Unknown]
  - Oral mucosal blistering [Unknown]
  - Oral mucosal exfoliation [Unknown]
  - Erythema [Unknown]
  - Pain in extremity [Unknown]
  - White blood cell count decreased [Unknown]
  - Back pain [Unknown]
  - Product dose omission in error [Unknown]
